FAERS Safety Report 6162752-2 (Version None)
Quarter: 2009Q2

REPORT INFORMATION
  Report Type: 
  Country: None (occurrence: None)
  Receive Date: 20090421
  Receipt Date: 20080430
  Transmission Date: 20091009
  Serious: No
  Sender: FDA-Public Use
  Company Number: US-ASTRAZENECA-2008UW08729

PATIENT
  Age: 68 Year
  Sex: Female

DRUGS (3)
  1. TOPROL-XL [Suspect]
     Route: 048
  2. ADALAT [Suspect]
  3. TRANDATE [Suspect]

REACTIONS (2)
  - PALPITATIONS [None]
  - TINNITUS [None]
